FAERS Safety Report 5329081-8 (Version None)
Quarter: 2007Q2

REPORT INFORMATION
  Report Type: 
  Country: None (occurrence: None)
  Receive Date: 20070518
  Receipt Date: 20070509
  Transmission Date: 20071010
  Serious: Yes (Other)
  Sender: FDA-Public Use
  Company Number: US-GENENTECH-241424

PATIENT
  Age: 35 Year
  Sex: Female

DRUGS (12)
  1. RITUXAN [Suspect]
     Indication: RHEUMATOID ARTHRITIS
  2. ENBREL [Concomitant]
     Indication: RHEUMATOID ARTHRITIS
  3. PREDNISONE TAB [Concomitant]
     Indication: DRUG USE FOR UNKNOWN INDICATION
  4. TOPAL [Concomitant]
     Indication: DRUG USE FOR UNKNOWN INDICATION
  5. OXYCODONE HCL [Concomitant]
     Indication: DRUG USE FOR UNKNOWN INDICATION
  6. PROGRAF [Concomitant]
     Indication: DRUG USE FOR UNKNOWN INDICATION
  7. ISOSORBIDE [Concomitant]
     Indication: DRUG USE FOR UNKNOWN INDICATION
  8. ACTONEL [Concomitant]
     Indication: DRUG USE FOR UNKNOWN INDICATION
  9. REMICADE [Concomitant]
     Indication: RHEUMATOID ARTHRITIS
  10. HUMIRA [Concomitant]
     Indication: RHEUMATOID ARTHRITIS
  11. MTX [Concomitant]
     Indication: RHEUMATOID ARTHRITIS
  12. GOLD [Concomitant]
     Indication: RHEUMATOID ARTHRITIS

REACTIONS (4)
  - CHEST PAIN [None]
  - HEART RATE IRREGULAR [None]
  - PHARYNGEAL OEDEMA [None]
  - VISION BLURRED [None]
